FAERS Safety Report 13797646 (Version 1)
Quarter: 2017Q3

REPORT INFORMATION
  Report Type: Report from Study
  Country: US (occurrence: US)
  Receive Date: 20170727
  Receipt Date: 20170727
  Transmission Date: 20171127
  Serious: Yes (Other)
  Sender: FDA-Public Use
  Company Number: US-TAKEDA-2017TUS015448

PATIENT
  Sex: Male

DRUGS (1)
  1. VEDOLIZUMAB [Suspect]
     Active Substance: VEDOLIZUMAB
     Indication: CROHN^S DISEASE
     Dosage: UNK
     Route: 042

REACTIONS (6)
  - Knee arthroplasty [Unknown]
  - Gastrointestinal sounds abnormal [Unknown]
  - Nausea [Unknown]
  - Arthritis [Unknown]
  - Diarrhoea [Unknown]
  - Abdominal pain [Unknown]
